FAERS Safety Report 15934511 (Version 1)
Quarter: 2019Q1

REPORT INFORMATION
  Report Type: Spontaneous
  Country: JP (occurrence: JP)
  Receive Date: 20190207
  Receipt Date: 20190207
  Transmission Date: 20190417
  Serious: Yes (Hospitalization)
  Sender: FDA-Public Use
  Company Number: JP-NAPPMUNDI-GBR-2019-0063958

PATIENT
  Age: 70 Year
  Sex: Female

DRUGS (5)
  1. NORSPAN [Suspect]
     Active Substance: BUPRENORPHINE
     Indication: NEURALGIA
  2. DICLOFENAC NA [Concomitant]
     Active Substance: DICLOFENAC SODIUM
     Dosage: 150 MG, DAILY
     Route: 054
  3. KETOPROFEN. [Concomitant]
     Active Substance: KETOPROFEN
     Route: 062
  4. NORSPAN [Suspect]
     Active Substance: BUPRENORPHINE
     Indication: HYPOAESTHESIA
     Dosage: UNK
     Route: 062
  5. PREDNISOLONE. [Concomitant]
     Active Substance: PREDNISOLONE
     Route: 065

REACTIONS (3)
  - Skin fragility [Unknown]
  - Pneumonia [Unknown]
  - Dermatitis allergic [Unknown]
